FAERS Safety Report 9957258 (Version 1)
Quarter: 2014Q1

REPORT INFORMATION
  Report Type: Report from Study
  Country: US (occurrence: US)
  Receive Date: 20140304
  Receipt Date: 20140304
  Transmission Date: 20141002
  Serious: No
  Sender: FDA-Public Use
  Company Number: US-ABBVIE-13P-163-1094327-00

PATIENT
  Age: 38 Year
  Sex: Female

DRUGS (5)
  1. HUMIRA [Suspect]
     Indication: CROHN^S DISEASE
     Dosage: LOADING DOSE DAY 1
     Route: 058
     Dates: start: 20130212, end: 20130212
  2. HUMIRA [Suspect]
     Dosage: DAY 15
     Route: 058
  3. HUMIRA [Suspect]
     Route: 058
  4. APRISO [Concomitant]
     Indication: COLITIS
  5. A STEROID [Concomitant]
     Indication: CROHN^S DISEASE

REACTIONS (2)
  - Crohn^s disease [Not Recovered/Not Resolved]
  - Injection site urticaria [Not Recovered/Not Resolved]
